FAERS Safety Report 5598651-4 (Version None)
Quarter: 2008Q1

REPORT INFORMATION
  Report Type: 
  Country: None (occurrence: None)
  Receive Date: 20080117
  Receipt Date: 20080108
  Transmission Date: 20080703
  Serious: Yes (Death, Other)
  Sender: FDA-Public Use
  Company Number: 18156

PATIENT
  Age: 12 Year
  Sex: Male

DRUGS (6)
  1. METHOTREXATE [Suspect]
     Indication: PROPHYLAXIS AGAINST GRAFT VERSUS HOST DISEASE
     Dosage: 2.5 MG/M2
  2. FLUDARABINE PHOSPHATE [Suspect]
     Indication: STEM CELL TRANSPLANT
     Dosage: 180 MG/M2
  3. TREOSULPHAN [Suspect]
     Indication: STEM CELL TRANSPLANT
     Dosage: 12 G/M2
  4. MELPHALAN [Suspect]
     Indication: STEM CELL TRANSPLANT
     Dosage: 140 MG/M2
  5. ATG /00233401/. MFR: NOT SPECIFIED [Suspect]
     Indication: STEM CELL TRANSPLANT
     Dosage: 60 MG/KG
  6. CYCLOSPORINE [Suspect]
     Indication: PROPHYLAXIS AGAINST GRAFT VERSUS HOST DISEASE

REACTIONS (6)
  - ACUTE RESPIRATORY DISTRESS SYNDROME [None]
  - CAPILLARY LEAK SYNDROME [None]
  - DERMATITIS EXFOLIATIVE [None]
  - MUCOSAL INFLAMMATION [None]
  - MULTI-ORGAN FAILURE [None]
  - RENAL FAILURE [None]
